FAERS Safety Report 4644164-3 (Version None)
Quarter: 2005Q2

REPORT INFORMATION
  Report Type: 
  Country: None (occurrence: None)
  Receive Date: 20050425
  Receipt Date: 20050414
  Transmission Date: 20051028
  Serious: Yes (Other)
  Sender: FDA-Public Use
  Company Number: SE-GLAXOSMITHKLINE-B0378819A

PATIENT

DRUGS (1)
  1. PAROXETINE HCL [Suspect]
     Route: 065

REACTIONS (1)
  - COLITIS [None]
